FAERS Safety Report 14158260 (Version 5)
Quarter: 2018Q1

REPORT INFORMATION
  Report Type: Report from Study
  Country: JP (occurrence: JP)
  Receive Date: 20171103
  Receipt Date: 20180309
  Transmission Date: 20180508
  Serious: Yes (Death)
  Sender: FDA-Public Use
  Company Number: JP-ASTRAZENECA-2017SF12003

PATIENT
  Age: 75 Year
  Sex: Female
  Weight: 36 kg

DRUGS (1)
  1. TAGRISSO [Suspect]
     Active Substance: OSIMERTINIB
     Indication: NON-SMALL CELL LUNG CANCER
     Route: 048
     Dates: start: 20161025, end: 20170531

REACTIONS (1)
  - Spinal compression fracture [Fatal]

NARRATIVE: CASE EVENT DATE: 20170420
